FAERS Safety Report 13653119 (Version 1)
Quarter: 2017Q2

REPORT INFORMATION
  Report Type: Spontaneous
  Country: FR (occurrence: FR)
  Receive Date: 20170614
  Receipt Date: 20170614
  Transmission Date: 20170830
  Serious: Yes (Other)
  Sender: FDA-Public Use
  Company Number: FR-BAYER-2017-110221

PATIENT
  Age: 45 Year
  Sex: Female

DRUGS (1)
  1. JAYDESS [Suspect]
     Active Substance: LEVONORGESTREL
     Indication: CONTRACEPTION
     Dosage: 14 MCG/24HR, CONT
     Route: 015
     Dates: start: 20160621

REACTIONS (9)
  - Sleep disorder [Unknown]
  - Acne [Unknown]
  - Aggression [Unknown]
  - Peripheral venous disease [Unknown]
  - Headache [Unknown]
  - Loss of libido [Unknown]
  - Breast pain [Unknown]
  - Abnormal weight gain [Unknown]
  - Depressed mood [Unknown]

NARRATIVE: CASE EVENT DATE: 201607
